FAERS Safety Report 18349463 (Version 2)
Quarter: 2020Q4

REPORT INFORMATION
  Report Type: Spontaneous
  Country: FR (occurrence: FR)
  Receive Date: 20201006
  Receipt Date: 20201026
  Transmission Date: 20210114
  Serious: Yes (Other)
  Sender: FDA-Public Use
  Company Number: NVSC2020FR146604

PATIENT
  Age: 83 Year
  Sex: Female
  Weight: 70 kg

DRUGS (25)
  1. ZOFRAN [Suspect]
     Active Substance: ONDANSETRON HYDROCHLORIDE
     Indication: PERIPHERAL T-CELL LYMPHOMA UNSPECIFIED
     Dosage: 8 MG, QD
     Route: 065
     Dates: start: 20200128, end: 20200128
  2. ISTODAX [Suspect]
     Active Substance: ROMIDEPSIN
     Dosage: 14 MG/M2
     Route: 041
     Dates: start: 20200309
  3. ISTODAX [Suspect]
     Active Substance: ROMIDEPSIN
     Dosage: UNK
     Route: 041
     Dates: start: 20200806
  4. ONDANSETRON [Concomitant]
     Active Substance: ONDANSETRON
     Indication: ANTIEMETIC SUPPORTIVE CARE
     Dosage: 8 MG
     Route: 065
  5. ISTODAX [Suspect]
     Active Substance: ROMIDEPSIN
     Dosage: 14 MG/M2
     Route: 041
     Dates: start: 20200225
  6. ISTODAX [Suspect]
     Active Substance: ROMIDEPSIN
     Dosage: 23.75 MG/M2
     Route: 041
     Dates: start: 20200811, end: 20200811
  7. ISTODAX [Suspect]
     Active Substance: ROMIDEPSIN
     Dosage: 14 MG/M2
     Route: 041
     Dates: start: 20200921
  8. BENDAMUSTINE [Concomitant]
     Active Substance: BENDAMUSTINE
     Indication: PRODUCT USED FOR UNKNOWN INDICATION
     Dosage: UNK
     Route: 065
  9. ZOFRAN [Suspect]
     Active Substance: ONDANSETRON HYDROCHLORIDE
     Dosage: 8 MG
     Route: 065
  10. ISTODAX [Suspect]
     Active Substance: ROMIDEPSIN
     Dosage: 14 MG/M2
     Route: 041
     Dates: start: 20200127
  11. ISTODAX [Suspect]
     Active Substance: ROMIDEPSIN
     Dosage: 11 MG/M2
     Route: 041
     Dates: start: 20200211
  12. ISTODAX [Suspect]
     Active Substance: ROMIDEPSIN
     Dosage: 14 MG/M2
     Route: 041
     Dates: start: 20200406
  13. ZOFRAN [Suspect]
     Active Substance: ONDANSETRON HYDROCHLORIDE
     Indication: ANTIEMETIC SUPPORTIVE CARE
     Dosage: 8 MG
     Route: 065
     Dates: start: 20200211, end: 20200211
  14. ISTODAX [Suspect]
     Active Substance: ROMIDEPSIN
     Indication: PERIPHERAL T-CELL LYMPHOMA UNSPECIFIED
     Dosage: 23.75 UNK
     Route: 042
     Dates: start: 20200127
  15. ISTODAX [Suspect]
     Active Substance: ROMIDEPSIN
     Dosage: 14 MG/M2
     Route: 041
     Dates: start: 20200702
  16. ZOFRAN [Suspect]
     Active Substance: ONDANSETRON HYDROCHLORIDE
     Dosage: 8 MG, QD
     Route: 065
     Dates: start: 20200811, end: 20200811
  17. ISTODAX [Suspect]
     Active Substance: ROMIDEPSIN
     Dosage: 14 MG/M2
     Route: 041
     Dates: start: 20200709
  18. ISTODAX [Suspect]
     Active Substance: ROMIDEPSIN
     Dosage: 14 MG/M2
     Route: 041
     Dates: start: 20200817
  19. ISTODAX [Suspect]
     Active Substance: ROMIDEPSIN
     Dosage: UNK
     Route: 041
     Dates: start: 20201005
  20. ISTODAX [Suspect]
     Active Substance: ROMIDEPSIN
     Dosage: 23.75 MG/M2, QD
     Route: 041
     Dates: start: 20200128, end: 20200128
  21. ISTODAX [Suspect]
     Active Substance: ROMIDEPSIN
     Dosage: 14 MG/M2
     Route: 041
     Dates: start: 20200717
  22. ISTODAX [Suspect]
     Active Substance: ROMIDEPSIN
     Dosage: 14 MG/M2
     Route: 041
     Dates: start: 20200730
  23. ISTODAX [Suspect]
     Active Substance: ROMIDEPSIN
     Dosage: 23.75 MG
     Route: 041
     Dates: start: 20200928
  24. ONDANSETRON [Concomitant]
     Active Substance: ONDANSETRON
     Dosage: UNK
     Route: 065
  25. CHOP [Concomitant]
     Active Substance: CYCLOPHOSPHAMIDE\DOXORUBICIN\PREDNISONE\VINCRISTINE
     Indication: PRODUCT USED FOR UNKNOWN INDICATION
     Dosage: UNK
     Route: 065

REACTIONS (5)
  - Neutropenia [Unknown]
  - Neutropenia [Recovered/Resolved]
  - Tonsillitis [Recovered/Resolved]
  - Thrombocytopenia [Recovered/Resolved]
  - Haematotoxicity [Unknown]

NARRATIVE: CASE EVENT DATE: 2020
